FAERS Safety Report 15535396 (Version 3)
Quarter: 2018Q4

REPORT INFORMATION
  Report Type: Spontaneous
  Country: US (occurrence: US)
  Receive Date: 20181022
  Receipt Date: 20181106
  Transmission Date: 20190205
  Serious: Yes (Other)
  Sender: FDA-Public Use
  Company Number: US-HETERO-HET2018US01088

PATIENT
  Sex: Female

DRUGS (1)
  1. MONTELUKAST [Suspect]
     Active Substance: MONTELUKAST SODIUM
     Indication: PRODUCT USED FOR UNKNOWN INDICATION
     Dosage: 10 MG
     Route: 065
     Dates: start: 20170821

REACTIONS (6)
  - Chest pain [Unknown]
  - Myocardial infarction [Unknown]
  - Back pain [Unknown]
  - Muscular weakness [Unknown]
  - Wrong product administered [Unknown]
  - Headache [Unknown]
